FAERS Safety Report 14632637 (Version 2)
Quarter: 2018Q1

REPORT INFORMATION
  Report Type: Spontaneous
  Country: US (occurrence: US)
  Receive Date: 20180313
  Receipt Date: 20180329
  Transmission Date: 20180509
  Serious: No
  Sender: FDA-Public Use
  Company Number: US-BEH-2018088704

PATIENT
  Age: 49 Year
  Sex: Female
  Weight: 22.68 kg

DRUGS (11)
  1. AMBIEN [Concomitant]
     Active Substance: ZOLPIDEM TARTRATE
     Route: 065
  2. PREDNISONE. [Concomitant]
     Active Substance: PREDNISONE
     Route: 065
  3. XANAX [Concomitant]
     Active Substance: ALPRAZOLAM
     Route: 065
  4. PRIVIGEN [Suspect]
     Active Substance: HUMAN IMMUNOGLOBULIN G
     Dosage: 20 G, TOT
     Route: 042
     Dates: start: 20180201, end: 20180201
  5. PRIVIGEN [Suspect]
     Active Substance: HUMAN IMMUNOGLOBULIN G
     Dosage: 5 G, TOT
     Route: 042
     Dates: start: 20180105, end: 20180105
  6. PRIVIGEN [Suspect]
     Active Substance: HUMAN IMMUNOGLOBULIN G
     Dosage: 5 G, TOT
     Route: 042
     Dates: start: 20180201, end: 20180201
  7. LOESTRIN NOS [Concomitant]
     Active Substance: ETHINYL ESTRADIOL\NORETHINDRONE ACETATE
     Route: 065
  8. PRIVIGEN [Suspect]
     Active Substance: HUMAN IMMUNOGLOBULIN G
     Dosage: 25 G, TOT
     Route: 042
     Dates: start: 20180301, end: 20180301
  9. PRIVIGEN [Suspect]
     Active Substance: HUMAN IMMUNOGLOBULIN G
     Indication: MULTIPLE SCLEROSIS
     Dosage: 5 G, TOT
     Route: 042
     Dates: start: 20180301, end: 20180301
  10. PRIVIGEN [Suspect]
     Active Substance: HUMAN IMMUNOGLOBULIN G
     Dosage: 20 G, TOT
     Route: 042
     Dates: start: 20180105, end: 20180105
  11. AVONEX [Concomitant]
     Active Substance: INTERFERON BETA-1A
     Route: 065

REACTIONS (6)
  - Oral pain [Unknown]
  - Fatigue [Unknown]
  - Somnolence [Unknown]
  - Urticaria [Unknown]
  - Headache [Unknown]
  - Headache [Unknown]

NARRATIVE: CASE EVENT DATE: 201802
